FAERS Safety Report 5324407-3 (Version None)
Quarter: 2007Q2

REPORT INFORMATION
  Report Type: 
  Country: None (occurrence: None)
  Receive Date: 20070509
  Receipt Date: 20070423
  Transmission Date: 20071010
  Serious: Yes (Hospitalization)
  Sender: FDA-Public Use
  Company Number: 2007RR-07152

PATIENT
  Age: 30 Year
  Sex: Female

DRUGS (1)
  1. ACETAMINOPHEN [Suspect]
     Dosage: 13 G, ORAL
     Route: 048

REACTIONS (4)
  - COAGULOPATHY [None]
  - HEPATIC FUNCTION ABNORMAL [None]
  - LIVER DISORDER [None]
  - OVERDOSE [None]
